FAERS Safety Report 4740804-9 (Version None)
Quarter: 2005Q3

REPORT INFORMATION
  Report Type: 
  Country: None (occurrence: None)
  Receive Date: 20050810
  Receipt Date: 20040629
  Transmission Date: 20060218
  Serious: No
  Sender: FDA-Public Use
  Company Number: US-GLAXOSMITHKLINE-A0516514A

PATIENT
  Age: 71 Year
  Sex: Male

DRUGS (2)
  1. TAGAMET HB 200 [Suspect]
     Dates: start: 20040629
  2. XANAX [Concomitant]

REACTIONS (1)
  - DIZZINESS [None]
